FAERS Safety Report 21135112 (Version 1)
Quarter: 2022Q3

REPORT INFORMATION
  Report Type: Spontaneous
  Country: US (occurrence: US)
  Receive Date: 20220727
  Receipt Date: 20220727
  Transmission Date: 20221026
  Serious: No
  Sender: FDA-Public Use
  Company Number: US-ENDO PHARMACEUTICALS INC-2022-000409

PATIENT
  Sex: Male

DRUGS (4)
  1. EDEX [Suspect]
     Active Substance: ALPROSTADIL
     Indication: Erectile dysfunction
     Dosage: UNK UNKNOWN, UNKNOWN (USED FOR THE PAST FEW MONTHS)
     Route: 065
     Dates: start: 2021
  2. EDEX [Suspect]
     Active Substance: ALPROSTADIL
     Indication: Erectile dysfunction
     Dosage: UNK UNKNOWN, UNKNOWN (USED FOR THE PAST FEW MONTHS)
     Route: 065
     Dates: start: 2021
  3. EDEX [Suspect]
     Active Substance: ALPROSTADIL
     Indication: Erectile dysfunction
     Dosage: UNK UNKNOWN, UNKNOWN (USED FOR THE PAST FEW MONTHS)
     Route: 065
     Dates: start: 2021
  4. EDEX [Suspect]
     Active Substance: ALPROSTADIL
     Indication: Erectile dysfunction
     Dosage: UNK UNKNOWN, UNKNOWN (USED FOR THE PAST FEW MONTHS)
     Route: 065
     Dates: start: 2021

REACTIONS (2)
  - Pain [Unknown]
  - Wrong technique in product usage process [Unknown]

NARRATIVE: CASE EVENT DATE: 20210101
